FAERS Safety Report 5136233-9 (Version None)
Quarter: 2006Q4

REPORT INFORMATION
  Report Type: 
  Country: None (occurrence: None)
  Receive Date: 20061027
  Receipt Date: 20061018
  Transmission Date: 20070319
  Serious: Yes (Other)
  Sender: FDA-Public Use
  Company Number: FR-JNJFOC-20061004291

PATIENT
  Age: 45 Year
  Sex: Female

DRUGS (1)
  1. EPITOMAX [Suspect]
     Indication: EPILEPSY
     Route: 048

REACTIONS (1)
  - VOGT-KOYANAGI-HARADA SYNDROME [None]
